FAERS Safety Report 5025436-X (Version None)
Quarter: 2006Q2

REPORT INFORMATION
  Report Type: 
  Country: None (occurrence: None)
  Receive Date: 20060608
  Receipt Date: 20060530
  Transmission Date: 20061013
  Serious: Yes (Hospitalization)
  Sender: FDA-Public Use
  Company Number: 2006-01332

PATIENT
  Age: 64 Year
  Sex: Male

DRUGS (2)
  1. VELCADE [Suspect]
     Dates: start: 20060510, end: 20060512
  2. MELPHALAN (MELPHALAN) [Suspect]
     Dates: start: 20060510, end: 20060512

REACTIONS (1)
  - ATRIAL FIBRILLATION [None]
